FAERS Safety Report 23850449 (Version 1)
Quarter: 2024Q2

REPORT INFORMATION
  Report Type: Other
  Country: ZA (occurrence: None)
  Receive Date: 20240513
  Receipt Date: 20240513
  Transmission Date: 20240716
  Serious: Yes (Other)
  Sender: FDA-Public Use
  Company Number: ZA-ROCHE-3556447

PATIENT
  Sex: Male

DRUGS (1)
  1. OCREVUS [Suspect]
     Active Substance: OCRELIZUMAB
     Indication: Primary progressive multiple sclerosis
     Dosage: AT 300 MG, AT DAY 0 AND 14, THEN 600 MG EVERY 6 MONTH
     Route: 041
     Dates: start: 20221018

REACTIONS (2)
  - Dysarthria [Unknown]
  - Motor neurone disease [Unknown]
